FAERS Safety Report 15454673 (Version 1)
Quarter: 2018Q4

REPORT INFORMATION
  Report Type: Spontaneous
  Country: US (occurrence: US)
  Receive Date: 20181002
  Receipt Date: 20181002
  Transmission Date: 20190204
  Serious: Yes (Other)
  Sender: FDA-Public Use
  Company Number: PHEH2018US040276

PATIENT
  Age: 72 Year
  Sex: Female

DRUGS (5)
  1. FLEXERIL [Concomitant]
     Active Substance: CYCLOBENZAPRINE HYDROCHLORIDE
     Indication: MUSCLE RELAXANT THERAPY
     Dosage: 10 MG, QD
     Route: 048
     Dates: start: 2018
  2. LUDEN^S [Concomitant]
     Indication: PRODUCT USED FOR UNKNOWN INDICATION
     Dosage: COUGH DROPS
     Route: 065
  3. LETROZOLE. [Suspect]
     Active Substance: LETROZOLE
     Indication: BREAST CANCER METASTATIC
     Dosage: 2.5 MG, QD
     Route: 048
     Dates: start: 2018
  4. IBRANCE [Suspect]
     Active Substance: PALBOCICLIB
     Indication: BREAST CANCER METASTATIC
     Dosage: 1 DF, QD FOR 3 WEEKS
     Route: 048
     Dates: start: 2018, end: 2018
  5. POTASSIUM CHLORIDE. [Concomitant]
     Active Substance: POTASSIUM CHLORIDE
     Indication: BONE DISORDER
     Dosage: 20 TB CR, BID
     Route: 048
     Dates: start: 2018

REACTIONS (9)
  - Respiration abnormal [Not Recovered/Not Resolved]
  - Rash [Not Recovered/Not Resolved]
  - Memory impairment [Not Recovered/Not Resolved]
  - Tooth loss [Not Recovered/Not Resolved]
  - Decreased appetite [Unknown]
  - Weight decreased [Unknown]
  - Stomatitis [Unknown]
  - Alopecia [Not Recovered/Not Resolved]
  - Tooth demineralisation [Not Recovered/Not Resolved]

NARRATIVE: CASE EVENT DATE: 201806
